FAERS Safety Report 10103173 (Version 1)
Quarter: 2014Q2

REPORT INFORMATION
  Report Type: Spontaneous
  Country: US (occurrence: US)
  Receive Date: 20140424
  Receipt Date: 20140424
  Transmission Date: 20141212
  Serious: No
  Sender: FDA-Public Use
  Company Number: US-BRISTOL-MYERS SQUIBB COMPANY-20148995

PATIENT
  Age: 88 Year
  Sex: Female
  Weight: 58.5 kg

DRUGS (6)
  1. ELIQUIS [Suspect]
     Dates: start: 201310
  2. ASPIRIN [Suspect]
  3. AMLODIPINE [Concomitant]
  4. CITALOPRAM [Concomitant]
     Dosage: CITALOPRAM 40 MG HALF A TABLET A DAY
  5. RAMIPRIL [Concomitant]
  6. FOLBIC [Concomitant]

REACTIONS (4)
  - Fall [Unknown]
  - Haemorrhage [Unknown]
  - Contusion [Unknown]
  - Wrong technique in drug usage process [Unknown]
